FAERS Safety Report 7033924-X (Version None)
Quarter: 2010Q4

REPORT INFORMATION
  Report Type: 
  Country: None (occurrence: None)
  Receive Date: 20101005
  Receipt Date: 20100920
  Transmission Date: 20110411
  Serious: Yes (Hospitalization)
  Sender: FDA-Public Use
  Company Number: DSM-2010-01328

PATIENT
  Age: 67 Year
  Sex: Female

DRUGS (14)
  1. OLMESARTAN MEDOXOMIL [Suspect]
     Indication: HYPERTENSION
     Dosage: 30 MG, ORAL
     Route: 048
     Dates: end: 20100707
  2. AUGMENTIN [Suspect]
     Indication: ERYSIPELAS
     Dosage: 2000/500 MG (4 IN 1 D), ORAL
     Route: 048
     Dates: start: 20100702, end: 20100707
  3. BRISTOPEN (OXACILLIN) (1 GRAM) (OXACILLIN) [Suspect]
     Indication: ERYSIPELAS
     Dosage: 2 GM ( 1 GM, 2 IN 1 D), ORAL
     Route: 048
     Dates: start: 20100630, end: 20100702
  4. METFORMINE (METFORMIN HYDROCHLORIDE) (METFORMIN HYDROCHLORIDE) [Suspect]
     Indication: INSULIN-REQUIRING TYPE 2 DIABETES MELLITUS
     Dosage: 3000 MG, ORAL
     Route: 048
     Dates: end: 20100707
  5. AMAREL (GLIMEPIRIDE) (GLIMEPIRIDE) [Suspect]
     Indication: INSULIN-REQUIRING TYPE 2 DIABETES MELLITUS
     Dosage: 4 MG, ORAL
     Route: 048
     Dates: end: 20100707
  6. LEVEMIR [Suspect]
     Indication: INSULIN-REQUIRING TYPE 2 DIABETES MELLITUS
     Dosage: 40 IU (1 IN 1 D)
     Dates: end: 20100705
  7. FLUDROCORTISONE (FLUDROCORITSONE) (FLUDROCORTISONE) [Concomitant]
  8. EFFERALGAN (PARACETAMOL) (PARACETAMOL) [Concomitant]
  9. VASTEN (PRAVASTATIN SODIUM) (PREVASTATIN SODIUM) [Concomitant]
  10. BONVIVA (IBANDRONIC ACID) (IBANDRONIC ACID) [Concomitant]
  11. OROCAL (CALCIUM CARBONATE) (CALCIUM CARBONATE) [Concomitant]
  12. DESLORATADINE [Concomitant]
  13. LEVOTHYROXINE SODIUM [Concomitant]
  14. HYDROCORTISONE (HYDROCORTISONE) (HYDROCORTISONE) [Concomitant]

REACTIONS (14)
  - ACCIDENTAL OVERDOSE [None]
  - DEHYDRATION [None]
  - DIARRHOEA [None]
  - DRUG LEVEL INCREASED [None]
  - GENERAL PHYSICAL HEALTH DETERIORATION [None]
  - HYPOGLYCAEMIA [None]
  - HYPONATRAEMIA [None]
  - KETONURIA [None]
  - LACTIC ACIDOSIS [None]
  - MALAISE [None]
  - RENAL FAILURE ACUTE [None]
  - THIRST [None]
  - TONGUE DRY [None]
  - WEIGHT DECREASED [None]
